FAERS Safety Report 9769095 (Version 1)
Quarter: 2013Q4

REPORT INFORMATION
  Report Type: Spontaneous
  Country: GB (occurrence: None)
  Receive Date: 20131216
  Receipt Date: 20131216
  Transmission Date: 20140711
  Serious: Yes (Other)
  Sender: FDA-Public Use
  Company Number: AUR-APL-2013-10292

PATIENT
  Age: 11 Year
  Sex: Female
  Weight: 22 kg

DRUGS (3)
  1. MONTELUKAST [Suspect]
     Indication: ASTHMA
     Route: 048
     Dates: start: 20130711
  2. DESLORATADINE [Concomitant]
  3. SERETIDE [Concomitant]

REACTIONS (1)
  - Eczema [None]
